FAERS Safety Report 8521563-0 (Version None)
Quarter: 2012Q3

REPORT INFORMATION
  Report Type: 
  Country: None (occurrence: None)
  Receive Date: 20120719
  Receipt Date: 20120716
  Transmission Date: 20120928
  Serious: Yes (Other)
  Sender: FDA-Public Use
  Company Number: PHEH2012US011699

PATIENT
  Sex: Male

DRUGS (3)
  1. METOPROLOL SUCCINATE [Concomitant]
     Dosage: 25 MG, UNK
  2. GABAPENTIN [Concomitant]
     Dosage: 30 MG, TID
  3. DIOVAN HCT [Suspect]
     Dosage: 1 DF (160 MG VALSAR AND 12.5 MG HYDRO), BID

REACTIONS (3)
  - HERNIA [None]
  - HERPES ZOSTER [None]
  - WRONG TECHNIQUE IN DRUG USAGE PROCESS [None]
